FAERS Safety Report 25531090 (Version 1)
Quarter: 2025Q3

REPORT INFORMATION
  Report Type: Spontaneous
  Country: EU (occurrence: EU)
  Receive Date: 20250708
  Receipt Date: 20250708
  Transmission Date: 20251020
  Serious: Yes (Hospitalization)
  Sender: BAUSCH AND LOMB
  Company Number: None

PATIENT
  Age: 36 Year
  Sex: Female

DRUGS (8)
  1. FAMOTIDINE [Suspect]
     Active Substance: FAMOTIDINE
     Indication: Dyspepsia
     Dosage: 20MG 1-0-0
     Route: 048
     Dates: start: 20250408, end: 20250608
  2. FAMOTIDINE [Suspect]
     Active Substance: FAMOTIDINE
  3. CLARITHROMYCIN [Suspect]
     Active Substance: CLARITHROMYCIN
     Indication: Helicobacter gastritis
     Route: 048
     Dates: start: 20250430, end: 20250514
  4. CLARITHROMYCIN [Suspect]
     Active Substance: CLARITHROMYCIN
  5. AMOXICILLIN [Suspect]
     Active Substance: AMOXICILLIN
     Indication: Helicobacter gastritis
     Dosage: 1000 MG 1-0-1
     Route: 048
     Dates: start: 20250430, end: 20250514
  6. AMOXICILLIN [Suspect]
     Active Substance: AMOXICILLIN
  7. METRONIDAZOLE [Suspect]
     Active Substance: METRONIDAZOLE
     Indication: Helicobacter gastritis
     Route: 048
     Dates: start: 20250430, end: 20250514
  8. METRONIDAZOLE [Suspect]
     Active Substance: METRONIDAZOLE

REACTIONS (1)
  - Mixed liver injury [Recovering/Resolving]

NARRATIVE: CASE EVENT DATE: 20250601
